FAERS Safety Report 9630542 (Version 2)
Quarter: 2014Q1

REPORT INFORMATION
  Report Type: Report from Study
  Country: US (occurrence: US)
  Receive Date: 20131018
  Receipt Date: 20140116
  Transmission Date: 20141002
  Serious: Yes (Other)
  Sender: FDA-Public Use
  Company Number: PHEH2013US021690

PATIENT
  Age: 70 Year
  Sex: Male

DRUGS (12)
  1. TASIGNA [Suspect]
     Indication: CHRONIC MYELOID LEUKAEMIA
     Dosage: 150 MG, BID
     Route: 048
  2. PANTOPRAZOLE [Interacting]
     Indication: GASTROOESOPHAGEAL REFLUX DISEASE
     Dosage: 4 MG, DAILY
     Dates: start: 20131106
  3. PREDNISONE [Concomitant]
     Indication: CHRONIC OBSTRUCTIVE PULMONARY DISEASE
     Dosage: 5 MG, DAILY
     Dates: start: 20131010
  4. CYMBALTA [Concomitant]
     Indication: DEPRESSION
     Dosage: 30 MG, BID
     Dates: start: 20130909
  5. MIRTAZEPINE [Concomitant]
     Indication: DEPRESSION
     Dosage: 15-30 MG DAILY
     Dates: start: 20130807
  6. ATIVAN [Concomitant]
     Indication: ANXIETY
     Dosage: 2 MG, TID
     Dates: start: 20131223
  7. OXYCODONE [Concomitant]
     Indication: PAIN
     Dosage: UNK
     Dates: start: 20130513
  8. TERAZOSIN [Concomitant]
     Indication: HYPERTENSION
     Dosage: 5 MG, UNK
     Dates: start: 20101011
  9. FINASTERIDE [Concomitant]
     Indication: HYPERTENSION
     Dosage: 5 MG, DAILY
     Dates: start: 20130926
  10. PRAVASTATIN [Concomitant]
     Indication: HYPERCHOLESTEROLAEMIA
     Dosage: 40 MG, DAILY
     Dates: start: 20130510
  11. DILTIAZEM [Concomitant]
     Indication: HYPERTENSION
     Dosage: 300 MG, DAILY
     Dates: start: 20110517
  12. DIOVAN [Concomitant]
     Indication: HYPERTENSION
     Dosage: 80 MG, DAILY
     Dates: start: 201306

REACTIONS (7)
  - Myocardial infarction [Unknown]
  - Palpitations [Unknown]
  - Troponin increased [Not Recovered/Not Resolved]
  - Chest pain [Not Recovered/Not Resolved]
  - Drug interaction [Unknown]
  - Vomiting [Unknown]
  - Nausea [Unknown]
